FAERS Safety Report 6675488-6 (Version None)
Quarter: 2010Q2

REPORT INFORMATION
  Report Type: 
  Country: None (occurrence: None)
  Receive Date: 20100409
  Receipt Date: 20100330
  Transmission Date: 20101027
  Serious: Yes (Hospitalization)
  Sender: FDA-Public Use
  Company Number: B0644014A

PATIENT
  Sex: Male

DRUGS (3)
  1. VENTOLIN [Suspect]
     Indication: BRONCHIAL HYPERREACTIVITY
     Route: 065
     Dates: start: 20050501
  2. SINGULAIR [Suspect]
     Indication: BRONCHIAL HYPERREACTIVITY
     Route: 048
     Dates: start: 20091228, end: 20100116
  3. ERYTHROCINE [Suspect]
     Indication: PERTUSSIS
     Route: 065
     Dates: start: 20091224, end: 20100107

REACTIONS (6)
  - CHROMATURIA [None]
  - GENERAL PHYSICAL HEALTH DETERIORATION [None]
  - HEPATITIS CHOLESTATIC [None]
  - JAUNDICE [None]
  - OCULAR ICTERUS [None]
  - VOMITING [None]
